FAERS Safety Report 18865848 (Version 1)
Quarter: 2021Q1

REPORT INFORMATION
  Report Type: Spontaneous
  Country: US (occurrence: US)
  Receive Date: 20210208
  Receipt Date: 20210208
  Transmission Date: 20210420
  Serious: No
  Sender: FDA-Public Use
  Company Number: US-ELI_LILLY_AND_COMPANY-US202102004138

PATIENT
  Sex: Female

DRUGS (1)
  1. FORTEO [Suspect]
     Active Substance: TERIPARATIDE
     Indication: OSTEOPOROSIS
     Dosage: 20 UG, UNKNOWN
     Route: 058
     Dates: start: 2015, end: 2020

REACTIONS (7)
  - Osteoporosis [Unknown]
  - Blood parathyroid hormone increased [Unknown]
  - Chest pain [Recovered/Resolved]
  - Off label use [Unknown]
  - Cardiac disorder [Unknown]
  - Calcinosis [Recovered/Resolved]
  - Decreased appetite [Unknown]
